FAERS Safety Report 9081959 (Version 1)
Quarter: 2013Q1

REPORT INFORMATION
  Report Type: Report from Study
  Country: US (occurrence: US)
  Receive Date: 20130130
  Receipt Date: 20130130
  Transmission Date: 20140127
  Serious: No
  Sender: FDA-Public Use
  Company Number: US-ABBOTT-12P-163-0917722-00

PATIENT
  Age: 70 Year
  Sex: Female

DRUGS (31)
  1. HUMIRA 40 MG/0.8 ML PEN [Suspect]
     Indication: PSORIATIC ARTHROPATHY
     Dates: start: 20120210
  2. HUMIRA 40 MG/0.8 ML PEN [Suspect]
  3. NORVASC [Concomitant]
     Indication: CARDIAC DISORDER
  4. POTASSIUM [Concomitant]
     Indication: PRODUCT USED FOR UNKNOWN INDICATION
  5. MECLIZINE [Concomitant]
     Indication: PRODUCT USED FOR UNKNOWN INDICATION
  6. DIPHENOXYLATE [Concomitant]
     Indication: PRODUCT USED FOR UNKNOWN INDICATION
     Dosage: 2-4 TIMES DAILY
  7. PROPRANOLOL [Concomitant]
     Indication: PRODUCT USED FOR UNKNOWN INDICATION
  8. VYVANSE [Concomitant]
     Indication: NARCOLEPSY
     Dosage: DAILY
  9. HALDOL [Concomitant]
     Indication: PRODUCT USED FOR UNKNOWN INDICATION
  10. ZOCOR [Concomitant]
     Indication: PRODUCT USED FOR UNKNOWN INDICATION
  11. ARICEPT [Concomitant]
     Indication: MENTAL IMPAIRMENT
     Dosage: 5 MG IN AM AND 10 MG AT BEDTIME
  12. DEMEROL [Concomitant]
     Indication: PAIN
     Dosage: 25MG AT NOON TO HELP WITH DIARRHEA AND 50 MG AT NIGHT TO HELP WITH PAIN AS NEEDED
  13. DEMEROL [Concomitant]
     Indication: DIARRHOEA
  14. PHENERGAN [Concomitant]
     Indication: NAUSEA
  15. HYDROCODONE [Concomitant]
     Indication: PRODUCT USED FOR UNKNOWN INDICATION
  16. EPIPEN [Concomitant]
     Indication: ILL-DEFINED DISORDER
  17. EPIPEN [Concomitant]
     Indication: ARTHROPOD BITE
  18. METROZINE [Concomitant]
     Indication: PRODUCT USED FOR UNKNOWN INDICATION
  19. LOMOTIL [Concomitant]
     Indication: PRODUCT USED FOR UNKNOWN INDICATION
     Dosage: UP TO 4 TIMES A DAY
  20. LOMOTIL [Concomitant]
  21. INDERAL [Concomitant]
     Indication: HYPERTENSION
  22. HALCION [Concomitant]
     Indication: SLEEP DISORDER THERAPY
     Dosage: EVERY DAY
  23. XANAX [Concomitant]
     Indication: PRODUCT USED FOR UNKNOWN INDICATION
     Dosage: AT NIGHT
  24. ALIGN [Concomitant]
     Indication: PROBIOTIC THERAPY
  25. LASIX [Concomitant]
     Indication: OEDEMA PERIPHERAL
     Dosage: 40/80MG
  26. B12 [Concomitant]
     Indication: VITAMIN B COMPLEX DEFICIENCY
     Route: 050
  27. ZINC [Concomitant]
     Indication: MINERAL SUPPLEMENTATION
  28. FOLIC ACID [Concomitant]
     Indication: FOLATE DEFICIENCY
  29. VITAMIN D3 [Concomitant]
     Indication: VITAMIN SUPPLEMENTATION
  30. CALCIUM [Concomitant]
     Indication: MINERAL SUPPLEMENTATION
  31. MAGNESIUM [Concomitant]
     Indication: MINERAL SUPPLEMENTATION

REACTIONS (12)
  - Pulmonary mass [Unknown]
  - Chest pain [Unknown]
  - Injection site pain [Unknown]
  - Injection site haemorrhage [Unknown]
  - Asthma [Unknown]
  - Fall [Unknown]
  - Excoriation [Unknown]
  - Wound [Unknown]
  - Wound [Unknown]
  - Contusion [Unknown]
  - Joint injury [Unknown]
  - Haemorrhage [Unknown]
